FAERS Safety Report 5038876-X (Version None)
Quarter: 2006Q2

REPORT INFORMATION
  Report Type: 
  Country: None (occurrence: None)
  Receive Date: 20060601
  Receipt Date: 20060222
  Transmission Date: 20061013
  Serious: No
  Sender: FDA-Public Use
  Company Number: 2005PV006187

PATIENT
  Age: 56 Year
  Sex: Female
  Weight: 91.6266 kg

DRUGS (8)
  1. BYETTA [Suspect]
     Indication: DIABETES MELLITUS NON-INSULIN-DEPENDENT
     Dosage: SEE IMAGE
     Route: 058
     Dates: start: 20051212
  2. BYETTA [Suspect]
     Indication: DIABETES MELLITUS NON-INSULIN-DEPENDENT
     Dosage: SEE IMAGE
     Route: 058
     Dates: start: 20060201
  3. GLUCOPHAGE [Concomitant]
  4. PRECOSE [Concomitant]
  5. AMARYL [Concomitant]
  6. AVANDAMET [Concomitant]
  7. VISTARIL [Concomitant]
  8. DIGOXIN [Concomitant]

REACTIONS (5)
  - DRY SKIN [None]
  - MUSCLE SPASMS [None]
  - PRURITUS GENERALISED [None]
  - SKIN INFECTION [None]
  - SKIN LACERATION [None]
